FAERS Safety Report 6371192-2 (Version None)
Quarter: 2009Q3

REPORT INFORMATION
  Report Type: 
  Country: None (occurrence: None)
  Receive Date: 20090923
  Receipt Date: 20070726
  Transmission Date: 20100115
  Serious: No
  Sender: FDA-Public Use
  Company Number: US-ASTRAZENECA-2007UW02118

PATIENT
  Age: 11814 Day
  Sex: Female
  Weight: 79.4 kg

DRUGS (10)
  1. SEROQUEL [Suspect]
     Indication: BIPOLAR DISORDER
     Dosage: 25-300MG
     Route: 048
     Dates: start: 20010202
  2. SEROQUEL [Suspect]
     Route: 048
     Dates: start: 20011201
  3. METFORMIN HCL [Concomitant]
     Route: 048
     Dates: start: 20070515
  4. PROTONIX [Concomitant]
     Route: 048
     Dates: start: 20070813
  5. KLONOPIN [Concomitant]
     Route: 048
     Dates: start: 20030321
  6. SIMETHICONE [Concomitant]
     Dosage: 80 MG, DAILY AS NEEDED
     Route: 048
     Dates: start: 20070813
  7. IBUPROFEN [Concomitant]
     Dosage: 600 MG, EVERY FOUR TO SIX HOURS, AS NEEDED
     Route: 048
     Dates: start: 20070813
  8. MAALOX [Concomitant]
     Dosage: 225-200 MG/5 ML, 1-2 TSP, DAILY AS NEEDED
     Route: 048
     Dates: start: 20070813
  9. EFFEXOR XR [Concomitant]
     Route: 048
     Dates: start: 20060113
  10. PREDNISONE [Concomitant]
     Dosage: 40 MG, QHS (TAPER)
     Route: 048
     Dates: start: 20001105

REACTIONS (14)
  - ABDOMINAL PAIN LOWER [None]
  - ANXIETY [None]
  - CHEST PAIN [None]
  - FLANK PAIN [None]
  - GASTROENTERITIS [None]
  - GASTROOESOPHAGEAL REFLUX DISEASE [None]
  - HEPATITIS B [None]
  - HEPATOSPLENOMEGALY [None]
  - HYPOGLYCAEMIA [None]
  - MIGRAINE [None]
  - MUSCLE STRAIN [None]
  - POST-TRAUMATIC STRESS DISORDER [None]
  - TENSION HEADACHE [None]
  - TYPE 2 DIABETES MELLITUS [None]
